FAERS Safety Report 8920318 (Version 1)
Quarter: 2012Q4

REPORT INFORMATION
  Report Type: 
  Country: RO (occurrence: RO)
  Receive Date: 20121122
  Receipt Date: 20121122
  Transmission Date: 20130627
  Serious: Yes (Other)
  Sender: FDA-Public Use
  Company Number: PHHY2012RO105105

PATIENT
  Age: 11 Year
  Sex: Male

DRUGS (2)
  1. SOMATROPIN [Suspect]
     Indication: GROWTH HORMONE DEFICIENCY
     Dosage: 0.6 mg, daily
  2. SOMATROPIN [Suspect]
     Dosage: 1 mg, daily

REACTIONS (6)
  - Restrictive cardiomyopathy [Unknown]
  - Fatigue [Unknown]
  - Dyspnoea exertional [Unknown]
  - Palpitations [Unknown]
  - Growth hormone deficiency [Unknown]
  - Dwarfism [Unknown]
